FAERS Safety Report 11234890 (Version 1)
Quarter: 2015Q3

REPORT INFORMATION
  Report Type: Spontaneous
  Country: IT (occurrence: IT)
  Receive Date: 20150702
  Receipt Date: 20150702
  Transmission Date: 20151125
  Serious: Yes (Other)
  Sender: FDA-Public Use
  Company Number: IT-AUROBINDO-AUR-APL-2015-05478

PATIENT
  Age: 43 Year
  Sex: Female

DRUGS (1)
  1. RISPERIDONE 4MG [Suspect]
     Active Substance: RISPERIDONE
     Indication: PSYCHOTIC DISORDER
     Dosage: 4 MG, DAILY
     Route: 048
     Dates: start: 20150522, end: 20150622

REACTIONS (1)
  - No therapeutic response [Recovering/Resolving]

NARRATIVE: CASE EVENT DATE: 20150622
